FAERS Safety Report 6124531-1 (Version None)
Quarter: 2009Q1

REPORT INFORMATION
  Report Type: 
  Country: None (occurrence: None)
  Receive Date: 20090319
  Receipt Date: 20090311
  Transmission Date: 20090719
  Serious: Yes (Life-Threatening)
  Sender: FDA-Public Use
  Company Number: IT-ELI_LILLY_AND_COMPANY-IT200903002939

PATIENT
  Sex: Male

DRUGS (2)
  1. HUMULIN R [Suspect]
     Indication: DIABETES MELLITUS
     Dosage: 36 U, DAILY (1/D)
     Route: 058
     Dates: start: 20080101, end: 20090215
  2. HUMULIN N [Suspect]
     Indication: DIABETES MELLITUS
     Dosage: 10 U, DAILY (1/D)
     Route: 058
     Dates: start: 20080101, end: 20090215

REACTIONS (2)
  - HYPOGLYCAEMIA [None]
  - PSYCHOMOTOR HYPERACTIVITY [None]
